FAERS Safety Report 8321269-7 (Version None)
Quarter: 2012Q2

REPORT INFORMATION
  Report Type: 
  Country: None (occurrence: None)
  Receive Date: 20120430
  Receipt Date: 20120419
  Transmission Date: 20120825
  Serious: Yes (Hospitalization)
  Sender: FDA-Public Use
  Company Number: US-BRISTOL-MYERS SQUIBB COMPANY-16505463

PATIENT
  Age: 71 Year
  Sex: Male
  Weight: 68 kg

DRUGS (4)
  1. METFORMIN HCL [Suspect]
     Indication: DIABETES MELLITUS INADEQUATE CONTROL
     Route: 048
     Dates: end: 20120305
  2. AMARYL [Suspect]
     Indication: TYPE 2 DIABETES MELLITUS
     Dates: end: 20120305
  3. VALTREX [Suspect]
     Indication: HERPES ZOSTER
     Dates: start: 20120301
  4. ONGLYZA [Suspect]
     Indication: DIABETES MELLITUS INADEQUATE CONTROL
     Route: 048
     Dates: start: 20120201, end: 20120305

REACTIONS (1)
  - DERMATITIS EXFOLIATIVE [None]
